FAERS Safety Report 5339610-6 (Version None)
Quarter: 2007Q2

REPORT INFORMATION
  Report Type: 
  Country: None (occurrence: None)
  Receive Date: 20070525
  Receipt Date: 20070525
  Transmission Date: 20071010
  Serious: No
  Sender: FDA-Public Use
  Company Number: None

PATIENT
  Sex: Female
  Weight: 65 kg

DRUGS (8)
  1. CARBOPLATIN [Suspect]
     Dosage: 372 MG
  2. TAXOL [Suspect]
     Dosage: 227 MG
  3. COMPAZINE [Concomitant]
  4. COUMADIN [Concomitant]
  5. DECADRON [Concomitant]
  6. OXYCONTIN [Concomitant]
  7. PERCOCET [Concomitant]
  8. ZANTAC [Concomitant]

REACTIONS (1)
  - NEUTROPHIL COUNT ABNORMAL [None]
